FAERS Safety Report 9697968 (Version 1)
Quarter: 2013Q4

REPORT INFORMATION
  Report Type: Spontaneous
  Country: GB (occurrence: GB)
  Receive Date: 20131120
  Receipt Date: 20131120
  Transmission Date: 20140711
  Serious: Yes (Other)
  Sender: FDA-Public Use
  Company Number: GB-ASTRAZENECA-2013SE82862

PATIENT
  Age: 79 Year
  Sex: Female
  Weight: 60.5 kg

DRUGS (3)
  1. LIGNOCAINE [Suspect]
     Indication: CATARACT OPERATION
     Route: 065
  2. LIGNOCAINE [Suspect]
     Indication: TOOTH REPAIR
     Route: 065
  3. PREMARIN [Concomitant]
     Dates: start: 1957

REACTIONS (6)
  - Feeling cold [Recovered/Resolved]
  - Decreased activity [Recovered/Resolved]
  - Drug hypersensitivity [Recovered/Resolved]
  - Feeling abnormal [Recovered/Resolved]
  - Chills [Recovered/Resolved]
  - Fatigue [Recovered/Resolved]
